FAERS Safety Report 10238285 (Version 2)
Quarter: 2014Q3

REPORT INFORMATION
  Report Type: Spontaneous
  Country: US (occurrence: US)
  Receive Date: 20140616
  Receipt Date: 20140702
  Transmission Date: 20150326
  Serious: No
  Sender: FDA-Public Use
  Company Number: US-PFIZER INC-2014164253

PATIENT
  Age: 75 Year
  Sex: Female
  Weight: 79.4 kg

DRUGS (2)
  1. LYRICA [Suspect]
     Active Substance: PREGABALIN
     Indication: SCLERODERMA
     Dosage: 100 MG, 3X/DAY
     Dates: end: 2014
  2. LYRICA [Suspect]
     Active Substance: PREGABALIN
     Indication: GENERAL PHYSICAL HEALTH DETERIORATION

REACTIONS (1)
  - Pain [Unknown]

NARRATIVE: CASE EVENT DATE: 2014
